FAERS Safety Report 7091267-2 (Version None)
Quarter: 2010Q4

REPORT INFORMATION
  Report Type: 
  Country: None (occurrence: None)
  Receive Date: 20101109
  Receipt Date: 20101101
  Transmission Date: 20110411
  Serious: Yes (Hospitalization, Other)
  Sender: FDA-Public Use
  Company Number: US-ABBOTT-10P-163-0683411-00

PATIENT
  Sex: Male
  Weight: 97.61 kg

DRUGS (20)
  1. HUMIRA [Suspect]
     Indication: PRODUCT USED FOR UNKNOWN INDICATION
     Dates: start: 20090101
  2. HUMIRA [Suspect]
     Dates: start: 20100401, end: 20100721
  3. FUROSEMIDE [Concomitant]
     Indication: PRODUCT USED FOR UNKNOWN INDICATION
  4. VYTORIN [Concomitant]
     Indication: PRODUCT USED FOR UNKNOWN INDICATION
     Dosage: 40/20MG
  5. DIPHEN/ATROP [Concomitant]
     Indication: CROHN'S DISEASE
  6. AMITRIPTYLINE HCL [Concomitant]
     Indication: CLUSTER HEADACHE
  7. GLYBURIDE [Concomitant]
     Indication: DIABETES MELLITUS
  8. DIOVAN [Concomitant]
     Indication: HYPERTENSION
  9. PROTONIX [Concomitant]
     Indication: GASTROOESOPHAGEAL REFLUX DISEASE
  10. COSOPT [Concomitant]
     Indication: GLAUCOMA
  11. TRAVATAN [Concomitant]
     Indication: GLAUCOMA
  12. LORATADINE [Concomitant]
     Indication: PRODUCT USED FOR UNKNOWN INDICATION
  13. NASACORT [Concomitant]
     Indication: SLEEP APNOEA SYNDROME
     Route: 045
  14. KLOR-CON [Concomitant]
     Indication: PRODUCT USED FOR UNKNOWN INDICATION
  15. ATENOLOL [Concomitant]
     Indication: HYPERTENSION
  16. SYNTHROID [Concomitant]
     Indication: THYROIDECTOMY
  17. METFORMIN [Concomitant]
     Indication: DIABETES MELLITUS
  18. ASACOL/MESOTHLAMINE [Concomitant]
     Indication: CROHN'S DISEASE
  19. VITAMIN D [Concomitant]
     Indication: PRODUCT USED FOR UNKNOWN INDICATION
  20. NOVALOG [Concomitant]
     Indication: DIABETES MELLITUS
     Dosage: PER SLIDING SCALE

REACTIONS (18)
  - BLOOD URIC ACID INCREASED [None]
  - CHILLS [None]
  - COLITIS [None]
  - CROHN'S DISEASE [None]
  - DIARRHOEA [None]
  - DIARRHOEA HAEMORRHAGIC [None]
  - DRUG INEFFECTIVE [None]
  - ERYTHEMA MIGRANS [None]
  - FATIGUE [None]
  - LYME DISEASE [None]
  - NAUSEA [None]
  - NEPHROLITHIASIS [None]
  - PNEUMONIA [None]
  - PROSTATOMEGALY [None]
  - PYREXIA [None]
  - URINARY RETENTION [None]
  - VOMITING [None]
  - WEIGHT DECREASED [None]
